FAERS Safety Report 5571221-X (Version None)
Quarter: 2007Q4

REPORT INFORMATION
  Report Type: 
  Country: None (occurrence: None)
  Receive Date: 20071221
  Receipt Date: 20070220
  Transmission Date: 20080405
  Serious: No
  Sender: FDA-Public Use
  Company Number: A0640247A

PATIENT
  Age: 51 Year
  Sex: Male

DRUGS (4)
  1. FLONASE [Suspect]
     Indication: CHRONIC SINUSITIS
     Route: 045
     Dates: start: 20070220
  2. ZOCOR [Concomitant]
  3. PRILOSEC [Concomitant]
  4. AUGMENTIN '250' [Concomitant]

REACTIONS (1)
  - ACCIDENTAL OVERDOSE [None]
